FAERS Safety Report 12615753 (Version 2)
Quarter: 2016Q3

REPORT INFORMATION
  Report Type: Spontaneous
  Country: None (occurrence: CN)
  Receive Date: 20160802
  Receipt Date: 20160809
  Transmission Date: 20161109
  Serious: Yes (Other)
  Sender: FDA-Public Use
  Company Number: CN-MERCK KGAA-1055773

PATIENT

DRUGS (1)
  1. NOVOTHYROX [Suspect]
     Active Substance: LEVOTHYROXINE SODIUM

REACTIONS (6)
  - Accidental overdose [None]
  - Blood thyroid stimulating hormone decreased [None]
  - Tri-iodothyronine free increased [None]
  - Tri-iodothyronine increased [None]
  - Thyroxine free increased [None]
  - Thyroxine increased [None]
